FAERS Safety Report 7409662-8 (Version None)
Quarter: 2011Q2

REPORT INFORMATION
  Report Type: 
  Country: None (occurrence: None)
  Receive Date: 20110412
  Receipt Date: 20110328
  Transmission Date: 20111010
  Serious: Yes (Hospitalization, Other)
  Sender: FDA-Public Use
  Company Number: DE-GENENTECH-306547

PATIENT
  Sex: Female

DRUGS (10)
  1. LUCENTIS [Suspect]
     Dosage: UNK
     Route: 031
     Dates: start: 20100727
  2. LUCENTIS [Suspect]
     Dosage: UNK
     Route: 031
     Dates: start: 20081027
  3. LUCENTIS [Suspect]
     Dosage: UNK
     Route: 031
     Dates: start: 20080915
  4. LUCENTIS [Suspect]
     Dosage: UNK
     Route: 031
     Dates: start: 20081013
  5. LUCENTIS [Suspect]
     Dosage: UNK
     Route: 031
     Dates: start: 20100628
  6. LUCENTIS [Suspect]
     Dosage: UNK
     Route: 031
  7. LUCENTIS [Suspect]
     Dosage: UNK
     Route: 031
     Dates: start: 20100830
  8. LUCENTIS [Suspect]
     Indication: MACULAR DEGENERATION
     Dosage: UNK
     Route: 031
     Dates: start: 20080818
  9. LUCENTIS [Suspect]
     Dosage: UNK
     Route: 031
  10. FUROSEMIDE [Concomitant]
     Indication: PRODUCT USED FOR UNKNOWN INDICATION

REACTIONS (6)
  - VIITH NERVE PARALYSIS [None]
  - HYPOKALAEMIA [None]
  - SPEECH DISORDER [None]
  - EYELID PTOSIS [None]
  - INAPPROPRIATE SCHEDULE OF DRUG ADMINISTRATION [None]
  - VISUAL ACUITY REDUCED [None]
